FAERS Safety Report 8225104-7 (Version None)
Quarter: 2012Q1

REPORT INFORMATION
  Report Type: 
  Country: None (occurrence: None)
  Receive Date: 20120321
  Receipt Date: 20120312
  Transmission Date: 20120608
  Serious: Yes (Other)
  Sender: FDA-Public Use
  Company Number: CA-JNJFOC-20120305417

PATIENT
  Sex: Male
  Weight: 97 kg

DRUGS (13)
  1. CIPROFLOXACIN HYDROCHLORIDE [Concomitant]
     Dosage: LEFT EYE
     Route: 031
  2. PRILOSEC [Concomitant]
     Route: 065
  3. PREDNISONE [Concomitant]
     Dosage: DECREASE RECURRING DOSE
     Route: 065
  4. DESYREL [Concomitant]
     Dosage: 1-2 TABLET HOUR OF SLEEP
     Route: 065
  5. LASIX [Concomitant]
     Route: 065
  6. SPIRIVA [Concomitant]
     Route: 065
  7. IBUPROFEN (ADVIL) [Concomitant]
     Dosage: AS NECESSARY
     Route: 065
  8. VENTOLIN [Concomitant]
     Dosage: 2 PUFF
     Route: 065
  9. SENOKOT [Concomitant]
     Dosage: 2 TABLETS HOUR OF SLEEP
     Route: 065
  10. VITAMIN B6 [Concomitant]
     Route: 065
  11. ISONIAZID TAB [Concomitant]
     Route: 065
  12. REMICADE [Suspect]
     Indication: RHEUMATOID ARTHRITIS
     Dosage: 0, 2, 6 AND 8 WEEKS
     Route: 042
     Dates: start: 20120223
  13. FLOVENT [Concomitant]
     Dosage: 2 PUFFS
     Route: 065

REACTIONS (2)
  - LATENT TUBERCULOSIS [None]
  - PRURITUS [None]
